FAERS Safety Report 12082267 (Version 3)
Quarter: 2016Q2

REPORT INFORMATION
  Report Type: Report from Study
  Country: CN (occurrence: CN)
  Receive Date: 20160217
  Receipt Date: 20160601
  Transmission Date: 20160815
  Serious: Yes (Death, Hospitalization, Other)
  Sender: FDA-Public Use
  Company Number: CN-ROCHE-1471854

PATIENT
  Sex: Male
  Weight: 55 kg

DRUGS (3)
  1. AVASTIN [Suspect]
     Active Substance: BEVACIZUMAB
     Dosage: RESTARTED
     Route: 042
  2. XELODA [Suspect]
     Active Substance: CAPECITABINE
     Indication: RECTAL CANCER
     Dosage: THREE WEEKS ONCE CYCLE
     Route: 048
  3. AVASTIN [Suspect]
     Active Substance: BEVACIZUMAB
     Indication: RECTAL CANCER
     Route: 041
     Dates: start: 20140509, end: 20151217

REACTIONS (10)
  - Condition aggravated [Fatal]
  - Skin discolouration [Recovering/Resolving]
  - Oedema peripheral [Unknown]
  - Asthenia [Unknown]
  - Cardiac discomfort [Unknown]
  - Dyspnoea [Unknown]
  - Skin induration [Recovering/Resolving]
  - Nasopharyngitis [Recovering/Resolving]
  - Blood albumin decreased [Recovering/Resolving]
  - Cardiac disorder [Unknown]
